FAERS Safety Report 12561260 (Version 2)
Quarter: 2016Q3

REPORT INFORMATION
  Report Type: Spontaneous
  Country: US (occurrence: US)
  Receive Date: 20160715
  Receipt Date: 20160722
  Transmission Date: 20161109
  Serious: Yes (Hospitalization)
  Sender: FDA-Public Use
  Company Number: US-PFIZER INC-2016337109

PATIENT
  Age: 48 Year
  Sex: Male
  Weight: 79 kg

DRUGS (16)
  1. SIROLIMUS. [Suspect]
     Active Substance: SIROLIMUS
     Indication: GRAFT VERSUS HOST DISEASE
     Dosage: UNK
     Dates: end: 20160510
  2. LOVENOX [Suspect]
     Active Substance: ENOXAPARIN SODIUM
     Indication: THROMBOSIS PROPHYLAXIS
     Dosage: UNK
     Dates: end: 20160510
  3. AZITHROMYCIN ANHYDROUS. [Concomitant]
     Active Substance: AZITHROMYCIN ANHYDROUS
     Dosage: UNK
  4. NIFEDIPINE. [Concomitant]
     Active Substance: NIFEDIPINE
  5. ATOVAQUONE. [Concomitant]
     Active Substance: ATOVAQUONE
     Dosage: UNK
     Dates: end: 20160511
  6. MONTELUKAST [Concomitant]
     Active Substance: MONTELUKAST SODIUM
     Dosage: UNK
  7. PREDNISONE. [Suspect]
     Active Substance: PREDNISONE
     Indication: GRAFT VERSUS HOST DISEASE
     Dosage: 5 MG, UNK (QOD)
     Route: 048
     Dates: end: 20160510
  8. METOPROLOL. [Concomitant]
     Active Substance: METOPROLOL
  9. FLUTICASONE PROPIONATE\SALMETEROL XINAFOATE [Concomitant]
     Active Substance: FLUTICASONE PROPIONATE\SALMETEROL XINAFOATE
     Dosage: UNK
  10. IMMUNOGLOBULIN [Concomitant]
     Active Substance: HUMAN IMMUNOGLOBULIN G
     Dosage: UNK
  11. LASIX [Concomitant]
     Active Substance: FUROSEMIDE
     Dosage: UNK
  12. POSACONAZOLE [Concomitant]
     Active Substance: POSACONAZOLE
     Dosage: UNK
     Dates: start: 2012, end: 20160320
  13. HEPARIN [Concomitant]
     Active Substance: HEPARIN SODIUM
     Dosage: UNK
  14. JAKAFI [Suspect]
     Active Substance: RUXOLITINIB
     Indication: GRAFT VERSUS HOST DISEASE
     Dosage: UNK
     Route: 048
     Dates: end: 20160510
  15. BUDESONIDE. [Concomitant]
     Active Substance: BUDESONIDE
     Dosage: UNK
     Dates: end: 20160511
  16. DITROPAN [Concomitant]
     Active Substance: OXYBUTYNIN CHLORIDE
     Dosage: UNK
     Dates: end: 20160511

REACTIONS (42)
  - Pain [Unknown]
  - Rhabdomyolysis [Unknown]
  - Muscular weakness [Unknown]
  - Groin pain [Unknown]
  - Psoas abscess [Unknown]
  - Anxiety [Unknown]
  - Pain in extremity [Unknown]
  - Pneumonia pseudomonal [Recovering/Resolving]
  - Diarrhoea [Unknown]
  - Haematuria [Unknown]
  - Hypophosphataemia [Unknown]
  - Burning sensation [Unknown]
  - Anaemia [Unknown]
  - Back pain [Unknown]
  - Encephalitis meningococcal [Unknown]
  - Respiratory failure [Unknown]
  - Varicella zoster virus infection [Unknown]
  - Hypercalcaemia [Unknown]
  - Hypernatraemia [Unknown]
  - Aspartate aminotransferase increased [Unknown]
  - Colonic pseudo-obstruction [Unknown]
  - Hypoaesthesia [Unknown]
  - Bacteraemia [Unknown]
  - Systemic inflammatory response syndrome [Unknown]
  - Pleural effusion [Unknown]
  - Abscess limb [Unknown]
  - Posterior reversible encephalopathy syndrome [Unknown]
  - Mental status changes [Unknown]
  - Leukocytosis [Unknown]
  - Pyrexia [Unknown]
  - Hypokalaemia [Unknown]
  - Toxicity to various agents [Unknown]
  - Graft versus host disease [Unknown]
  - Dyspnoea [Unknown]
  - Haematoma [Unknown]
  - Hypertension [Unknown]
  - Hyperglycaemia [Unknown]
  - Metabolic acidosis [Unknown]
  - Tachycardia [Unknown]
  - Bacterial disease carrier [Unknown]
  - White blood cell count increased [Unknown]
  - Hepatic enzyme abnormal [Unknown]

NARRATIVE: CASE EVENT DATE: 20160502
